FAERS Safety Report 8567707-6 (Version None)
Quarter: 2012Q3

REPORT INFORMATION
  Report Type: 
  Country: None (occurrence: None)
  Receive Date: 20120803
  Receipt Date: 20120618
  Transmission Date: 20120928
  Serious: Yes (Hospitalization)
  Sender: FDA-Public Use
  Company Number: US-GLAXOSMITHKLINE-A0981550A

PATIENT
  Age: 69 Year
  Sex: Female

DRUGS (12)
  1. GLIPIZIDE [Concomitant]
  2. OXYGEN [Concomitant]
  3. DILTIAZEM [Concomitant]
  4. FLUTICASONE PROPIONATE [Suspect]
     Indication: CHRONIC OBSTRUCTIVE PULMONARY DISEASE
     Dosage: 1PUFF TWICE PER DAY
     Route: 055
     Dates: start: 20111012
  5. SPIRIVA [Concomitant]
  6. IMDUR [Concomitant]
  7. ALLOPURINOL [Concomitant]
  8. NEXIUM [Concomitant]
  9. ENALAPRIL MALEATE [Concomitant]
  10. SINGULAIR [Concomitant]
  11. FLUTICASONE FUROATE [Concomitant]
  12. ASPIRIN [Concomitant]

REACTIONS (4)
  - PNEUMONIA [None]
  - CHRONIC OBSTRUCTIVE PULMONARY DISEASE [None]
  - SINUSITIS [None]
  - BRONCHITIS [None]
